FAERS Safety Report 14560293 (Version 2)
Quarter: 2018Q1

REPORT INFORMATION
  Report Type: Report from Study
  Country: None (occurrence: US)
  Receive Date: 20180222
  Receipt Date: 20180330
  Transmission Date: 20180509
  Serious: Yes (Other)
  Sender: FDA-Public Use
  Company Number: US-ABBVIE-17K-163-1890676-00

PATIENT
  Sex: Female

DRUGS (2)
  1. HUMIRA [Suspect]
     Active Substance: ADALIMUMAB
     Indication: RHEUMATOID ARTHRITIS
     Route: 058
  2. HUMIRA [Suspect]
     Active Substance: ADALIMUMAB
     Route: 058

REACTIONS (13)
  - Foot deformity [Recovering/Resolving]
  - Pain in extremity [Unknown]
  - Weight decreased [Unknown]
  - Back pain [Recovered/Resolved]
  - Neck pain [Unknown]
  - Therapeutic response shortened [Unknown]
  - Urinary tract infection [Unknown]
  - Kidney infection [Unknown]
  - Pneumonia [Unknown]
  - Muscular weakness [Unknown]
  - Fatigue [Unknown]
  - Rheumatoid arthritis [Unknown]
  - Bone deformity [Unknown]

NARRATIVE: CASE EVENT DATE: 2016
